FAERS Safety Report 9319405 (Version 2)
Quarter: 2013Q2

REPORT INFORMATION
  Report Type: Spontaneous
  Country: US (occurrence: None)
  Receive Date: 20130524
  Receipt Date: 20130624
  Transmission Date: 20140414
  Serious: Yes (Other)
  Sender: FDA-Public Use
  Company Number: 2013P1006060

PATIENT
  Age: 23 Year
  Sex: Female
  Weight: 53.07 kg

DRUGS (1)
  1. MYORISAN [Suspect]
     Indication: ACNE
     Route: 048
     Dates: start: 20130222, end: 20130510

REACTIONS (4)
  - Mood swings [None]
  - Irritability [None]
  - Feeling abnormal [None]
  - Impaired work ability [None]
